FAERS Safety Report 9749864 (Version 2)
Quarter: 2014Q1

REPORT INFORMATION
  Report Type: Spontaneous
  Country: US (occurrence: US)
  Receive Date: 20131212
  Receipt Date: 20140124
  Transmission Date: 20141002
  Serious: Yes (Hospitalization, Other)
  Sender: FDA-Public Use
  Company Number: US-PFIZER INC-2013354362

PATIENT
  Age: 74 Year
  Sex: Female
  Weight: 75.74 kg

DRUGS (4)
  1. CALAN SR [Suspect]
     Indication: HYPERTENSION
     Dosage: 120 MG, 1X/DAY
     Route: 048
  2. CALAN SR [Suspect]
     Dosage: 180 MG (BY SPLITTING 120 MG TABLET IN HALF AND TAKING ONE AND HALF 120 MG), 1X/DAY
     Route: 048
  3. CALAN SR [Suspect]
     Dosage: 180 MG, 2X/DAY
     Route: 048
     Dates: end: 201103
  4. HYDRALAZINE [Concomitant]
     Dosage: 10 MG, UNK
     Route: 048

REACTIONS (2)
  - Renal cancer [Recovered/Resolved]
  - Bladder cancer [Recovered/Resolved]
